FAERS Safety Report 9914033 (Version 1)
Quarter: 2014Q1

REPORT INFORMATION
  Report Type: Spontaneous
  Country: GB (occurrence: GB)
  Receive Date: 20140220
  Receipt Date: 20140220
  Transmission Date: 20141002
  Serious: Yes (Other)
  Sender: FDA-Public Use
  Company Number: GB-GLAXOSMITHKLINE-B0825117A

PATIENT
  Age: 42 Year
  Sex: Male
  Weight: 80 kg

DRUGS (3)
  1. TROBALT [Suspect]
     Indication: EPILEPSY
     Dosage: 700MG PER DAY
     Route: 048
     Dates: start: 20120131, end: 20120817
  2. TEGRETOL RETARD [Concomitant]
     Indication: EPILEPSY
     Dosage: 1000MG PER DAY
  3. PREGABALIN [Concomitant]
     Indication: EPILEPSY

REACTIONS (4)
  - Weight decreased [Recovered/Resolved]
  - Diarrhoea [Recovered/Resolved]
  - Frequent bowel movements [Recovered/Resolved]
  - Mouth ulceration [Recovered/Resolved]
